FAERS Safety Report 5400037-X (Version None)
Quarter: 2007Q3

REPORT INFORMATION
  Report Type: 
  Country: None (occurrence: None)
  Receive Date: 20070726
  Receipt Date: 20070726
  Transmission Date: 20080115
  Serious: Yes (Other)
  Sender: FDA-Public Use
  Company Number: None

PATIENT
  Sex: Female
  Weight: 51 kg

DRUGS (5)
  1. REMICADE [Suspect]
     Indication: COLITIS ULCERATIVE
     Dosage: 255 EVERY 6 WEEKS IV DRIP
     Route: 041
     Dates: start: 20040101
  2. ZOLOFT [Concomitant]
  3. METHADONE HCL [Concomitant]
  4. BENADRYL [Concomitant]
  5. TYLENOL (CAPLET) [Concomitant]

REACTIONS (7)
  - ANXIETY [None]
  - COUGH [None]
  - FATIGUE [None]
  - PRURITUS [None]
  - RASH [None]
  - SINUS DISORDER [None]
  - URTICARIA [None]
